FAERS Safety Report 7930903-2 (Version None)
Quarter: 2011Q4

REPORT INFORMATION
  Report Type: 
  Country: None (occurrence: None)
  Receive Date: 20111121
  Receipt Date: 20111118
  Transmission Date: 20120403
  Serious: Yes (Hospitalization)
  Sender: FDA-Public Use
  Company Number: IT-SANOFI-AVENTIS-2011SA075928

PATIENT
  Age: 80 Year
  Sex: Male

DRUGS (6)
  1. TORSEMIDE [Concomitant]
     Route: 048
  2. ENALAPRIL MALEATE [Concomitant]
     Route: 048
  3. NIFEDIPINE [Concomitant]
     Route: 048
  4. ASPIRIN [Concomitant]
     Route: 048
  5. AMARYL [Suspect]
     Route: 048
     Dates: start: 20100101, end: 20110429
  6. METFORMIN HCL [Suspect]
     Route: 048
     Dates: start: 20100101, end: 20110429

REACTIONS (2)
  - HYPOGLYCAEMIA [None]
  - PSYCHOMOTOR HYPERACTIVITY [None]
